FAERS Safety Report 6065359-0 (Version None)
Quarter: 2009Q1

REPORT INFORMATION
  Report Type: 
  Country: None (occurrence: None)
  Receive Date: 20090130
  Receipt Date: 20090119
  Transmission Date: 20090719
  Serious: Yes (Life-Threatening)
  Sender: FDA-Public Use
  Company Number: 005466

PATIENT
  Age: 3 Year
  Sex: Male

DRUGS (7)
  1. BUSULFEX [Suspect]
     Indication: STEM CELL TRANSPLANT
     Dosage: 18.6 MG, QID, INTRAVENOUS
     Route: 042
     Dates: start: 20090114, end: 20090117
  2. ACYCLOVIR [Concomitant]
  3. METRONIDAZOLE [Concomitant]
  4. ONDANSETRON HCL [Concomitant]
  5. LORAZEPAM [Concomitant]
  6. CEFTRIAXONE SODIUM (CEFRTRIAXONE SODIUM) [Concomitant]
  7. TOBRAMYCIN SULFATE (TOBRAMCYCIN SULFATE) [Concomitant]

REACTIONS (3)
  - CONVULSION [None]
  - HYPONATRAEMIA [None]
  - INAPPROPRIATE ANTIDIURETIC HORMONE SECRETION [None]
